FAERS Safety Report 24816260 (Version 1)
Quarter: 2025Q1

REPORT INFORMATION
  Report Type: Spontaneous
  Country: US (occurrence: US)
  Receive Date: 20250107
  Receipt Date: 20250107
  Transmission Date: 20250409
  Serious: Yes (Other)
  Sender: AMERICAN REGENT
  Company Number: US-AMERICAN REGENT INC-2025000037

PATIENT
  Age: 50 Year
  Sex: Female

DRUGS (4)
  1. OXALIPLATIN [Suspect]
     Active Substance: OXALIPLATIN
     Indication: Rectal cancer metastatic
     Route: 065
  2. LEUCOVORIN CALCIUM [Concomitant]
     Active Substance: LEUCOVORIN CALCIUM
     Indication: Rectal cancer metastatic
     Route: 065
  3. IRINOTECAN [Concomitant]
     Active Substance: IRINOTECAN
     Indication: Rectal cancer metastatic
     Route: 065
  4. FLUOROURACIL [Concomitant]
     Active Substance: FLUOROURACIL
     Indication: Rectal cancer metastatic
     Route: 065

REACTIONS (3)
  - Non-cirrhotic portal hypertension [Unknown]
  - Oesophageal varices haemorrhage [Unknown]
  - Anorectal varices [Unknown]
